FAERS Safety Report 10185552 (Version 1)
Quarter: 2014Q2

REPORT INFORMATION
  Report Type: Spontaneous
  Country: US (occurrence: US)
  Receive Date: 20140521
  Receipt Date: 20140521
  Transmission Date: 20141212
  Serious: Yes (Other)
  Sender: FDA-Public Use
  Company Number: US-PFIZER INC-2014135115

PATIENT
  Sex: 0

DRUGS (3)
  1. LYRICA [Suspect]
     Indication: FIBROMYALGIA
     Dosage: UNK
  2. SAVELLA [Suspect]
     Indication: FIBROMYALGIA
     Dosage: UNK
  3. CYMBALTA [Suspect]
     Indication: FIBROMYALGIA
     Dosage: UNK

REACTIONS (5)
  - Weight increased [Unknown]
  - Drug ineffective [Unknown]
  - Pain [Unknown]
  - Mobility decreased [Unknown]
  - Anxiety [Unknown]
